FAERS Safety Report 18869985 (Version 1)
Quarter: 2021Q1

REPORT INFORMATION
  Report Type: Other
  Country: IT (occurrence: IT)
  Receive Date: 20210210
  Receipt Date: 20210210
  Transmission Date: 20210420
  Serious: Yes (Other)
  Sender: FDA-Public Use
  Company Number: IT-CELLTRION INC.-2021IT001377

PATIENT

DRUGS (1)
  1. TRUXIMA [Suspect]
     Active Substance: RITUXIMAB-ABBS
     Indication: MULTIPLE SCLEROSIS
     Dosage: 600 MG, CYCLIC
     Route: 042
     Dates: start: 20190117, end: 20191004

REACTIONS (4)
  - Multiple injuries [Recovering/Resolving]
  - Blister [Recovering/Resolving]
  - Disseminated varicella zoster virus infection [Recovering/Resolving]
  - Off label use [Recovering/Resolving]

NARRATIVE: CASE EVENT DATE: 20200801
